FAERS Safety Report 10017128 (Version 2)
Quarter: 2014Q2

REPORT INFORMATION
  Report Type: Spontaneous
  Country: JP (occurrence: JP)
  Receive Date: 20140318
  Receipt Date: 20140604
  Transmission Date: 20141212
  Serious: Yes (Death, Other)
  Sender: FDA-Public Use
  Company Number: JP-ROCHE-1362438

PATIENT
  Age: 8 Decade
  Sex: Female

DRUGS (2)
  1. HERCEPTIN [Suspect]
     Indication: HER-2 POSITIVE BREAST CANCER
     Route: 041
  2. PACLITAXEL [Concomitant]
     Indication: HER-2 POSITIVE BREAST CANCER
     Route: 041

REACTIONS (3)
  - Cardiac arrest [Fatal]
  - Disease progression [Fatal]
  - Loss of consciousness [Not Recovered/Not Resolved]
